FAERS Safety Report 16007489 (Version 1)
Quarter: 2019Q1

REPORT INFORMATION
  Report Type: Spontaneous
  Country: US (occurrence: US)
  Receive Date: 20190226
  Receipt Date: 20190226
  Transmission Date: 20190418
  Serious: No
  Sender: FDA-Public Use
  Company Number: US-IGSA-SR10007470

PATIENT
  Age: 56 Year
  Sex: Female
  Weight: 77.55 kg

DRUGS (8)
  1. ATORVASTATIN [Concomitant]
     Active Substance: ATORVASTATIN
  2. MELATONIN [Concomitant]
     Active Substance: MELATONIN
  3. PROLASTIN-C LIQUID [Suspect]
     Active Substance: .ALPHA.1-PROTEINASE INHIBITOR HUMAN
     Indication: ALPHA-1 ANTI-TRYPSIN DEFICIENCY
     Dosage: 4650 MG, Q.WK.
     Route: 042
     Dates: start: 20181207
  4. FISH OIL [Concomitant]
     Active Substance: FISH OIL
  5. SINGULAIR [Concomitant]
     Active Substance: MONTELUKAST SODIUM
  6. MUCINEX [Concomitant]
     Active Substance: GUAIFENESIN
  7. GABAPENTIN. [Concomitant]
     Active Substance: GABAPENTIN
  8. SPIRIVA [Concomitant]
     Active Substance: TIOTROPIUM BROMIDE MONOHYDRATE

REACTIONS (4)
  - Headache [Not Recovered/Not Resolved]
  - Dizziness [Recovering/Resolving]
  - Chest discomfort [Recovering/Resolving]
  - Vomiting [Recovering/Resolving]

NARRATIVE: CASE EVENT DATE: 20181207
